FAERS Safety Report 7664912-8 (Version None)
Quarter: 2011Q3

REPORT INFORMATION
  Report Type: 
  Country: None (occurrence: None)
  Receive Date: 20110806
  Receipt Date: 20110103
  Transmission Date: 20111222
  Serious: No
  Sender: FDA-Public Use
  Company Number: US-ABBOTT-10P-163-0683623-00

PATIENT
  Sex: Male
  Weight: 77.18 kg

DRUGS (2)
  1. NIASPAN [Suspect]
     Indication: BLOOD CHOLESTEROL INCREASED
     Dosage: 500MG Q HS
     Dates: start: 20100322, end: 20100808
  2. DIOVAN [Concomitant]
     Indication: HYPERTENSION

REACTIONS (3)
  - PALPITATIONS [None]
  - FLUSHING [None]
  - DIZZINESS [None]
